FAERS Safety Report 4967165-4 (Version None)
Quarter: 2006Q2

REPORT INFORMATION
  Report Type: 
  Country: None (occurrence: None)
  Receive Date: 20060404
  Receipt Date: 20060323
  Transmission Date: 20061013
  Serious: No
  Sender: FDA-Public Use
  Company Number: HQWYE519624MAR06

PATIENT
  Age: 46 Year
  Sex: Female

DRUGS (1)
  1. EFFEXOR XR [Suspect]
     Indication: DEPRESSION
     Dosage: 75 MG 1X PER 1 DAY, ORAL
     Route: 048

REACTIONS (10)
  - ABNORMAL BEHAVIOUR [None]
  - AGGRESSION [None]
  - AGITATION [None]
  - EMOTIONAL DISORDER [None]
  - FATIGUE [None]
  - HOSTILITY [None]
  - IMPULSIVE BEHAVIOUR [None]
  - IRRITABILITY [None]
  - PARANOIA [None]
  - SOMNOLENCE [None]
